FAERS Safety Report 23506284 (Version 1)
Quarter: 2024Q1

REPORT INFORMATION
  Report Type: Spontaneous
  Country: US (occurrence: None)
  Receive Date: 20240208
  Receipt Date: 20240208
  Transmission Date: 20240409
  Serious: No
  Sender: FDA-Public Use
  Company Number: None

PATIENT
  Age: 65 Year
  Sex: Male

DRUGS (2)
  1. TEMOZOLOMIDE [Suspect]
     Active Substance: TEMOZOLOMIDE
     Indication: Neuroendocrine tumour
     Dosage: FREQUENCY : AT BEDTIME;?
     Route: 048
     Dates: start: 202310
  2. CAPECITABINE [Suspect]
     Active Substance: CAPECITABINE

REACTIONS (1)
  - Death [None]

NARRATIVE: CASE EVENT DATE: 20240126
